FAERS Safety Report 20230281 (Version 1)
Quarter: 2021Q4

REPORT INFORMATION
  Report Type: Spontaneous
  Country: US (occurrence: US)
  Receive Date: 20211226
  Receipt Date: 20211226
  Transmission Date: 20220303
  Serious: Yes (Hospitalization)
  Sender: FDA-Public Use
  Company Number: US-VALIDUS PHARMACEUTICALS LLC-US-VDP-2021-014782

PATIENT

DRUGS (2)
  1. LASIX [Suspect]
     Active Substance: FUROSEMIDE
     Indication: Product used for unknown indication
     Dosage: UNK
     Route: 065
  2. EPOPROSTENOL SODIUM [Suspect]
     Active Substance: EPOPROSTENOL SODIUM
     Indication: Pulmonary hypertension
     Dosage: 1.5 MG
     Route: 042

REACTIONS (10)
  - Asthenia [Not Recovered/Not Resolved]
  - Pleural effusion [Recovering/Resolving]
  - Fall [Unknown]
  - Depression [Unknown]
  - Cerebral haemorrhage [Unknown]
  - Urinary tract infection [Unknown]
  - Eating disorder [Unknown]
  - Spinal fracture [Unknown]
  - Blood potassium decreased [Recovering/Resolving]
  - Thrombosis in device [Unknown]
